FAERS Safety Report 17826337 (Version 1)
Quarter: 2020Q2

REPORT INFORMATION
  Report Type: Spontaneous
  Country: TR (occurrence: TR)
  Receive Date: 20200526
  Receipt Date: 20200526
  Transmission Date: 20200714
  Serious: Yes (Other)
  Sender: FDA-Public Use
  Company Number: TR-PFIZER INC-2020207362

PATIENT

DRUGS (1)
  1. DELIX (RAMIPRIL) [Suspect]
     Active Substance: RAMIPRIL
     Dosage: UNK

REACTIONS (2)
  - Drug hypersensitivity [Unknown]
  - Myocardial infarction [Unknown]
